FAERS Safety Report 18223937 (Version 1)
Quarter: 2020Q3

REPORT INFORMATION
  Report Type: Spontaneous
  Country: FR (occurrence: FR)
  Receive Date: 20200902
  Receipt Date: 20200902
  Transmission Date: 20201103
  Serious: Yes (Hospitalization)
  Sender: FDA-Public Use
  Company Number: FR-009507513-2008FRA012724

PATIENT
  Age: 48 Year
  Sex: Female

DRUGS (5)
  1. LOXAPAC (LOXAPINE SUCCINATE) [Suspect]
     Active Substance: LOXAPINE SUCCINATE
     Indication: SUICIDE ATTEMPT
     Dosage: NOT SPECIFIED
     Route: 048
     Dates: start: 20200716, end: 20200716
  2. ALPRAZOLAM. [Suspect]
     Active Substance: ALPRAZOLAM
     Indication: SUICIDE ATTEMPT
     Dosage: NOT SPECIFIED
     Route: 048
     Dates: start: 20200716, end: 20200716
  3. DEFANYL [Suspect]
     Active Substance: AMOXAPINE
     Indication: SUICIDE ATTEMPT
     Dosage: NOT SPECIFIED
     Route: 048
     Dates: start: 20200716, end: 20200716
  4. MIRTAZAPINE. [Suspect]
     Active Substance: MIRTAZAPINE
     Indication: SUICIDE ATTEMPT
     Dosage: NOT SPECIFIED
     Route: 048
     Dates: start: 20200716, end: 20200716
  5. VALIUM [Suspect]
     Active Substance: DIAZEPAM
     Indication: SUICIDE ATTEMPT
     Dosage: NOT SPECIFIED
     Route: 048
     Dates: start: 20200716, end: 20200716

REACTIONS (4)
  - Hypoxia [Not Recovered/Not Resolved]
  - Intentional overdose [Not Recovered/Not Resolved]
  - Toxicity to various agents [Not Recovered/Not Resolved]
  - Coma [Not Recovered/Not Resolved]

NARRATIVE: CASE EVENT DATE: 20200716
